FAERS Safety Report 6449266-7 (Version None)
Quarter: 2009Q4

REPORT INFORMATION
  Report Type: 
  Country: None (occurrence: None)
  Receive Date: 20091120
  Receipt Date: 20091116
  Transmission Date: 20100525
  Serious: Yes (Other)
  Sender: FDA-Public Use
  Company Number: TR-ROXANE LABORATORIES, INC.-2009-RO-01174RO

PATIENT
  Age: 8 Year
  Sex: Female

DRUGS (2)
  1. RISPERIDONE [Suspect]
     Indication: ADJUSTMENT DISORDER
     Dosage: 0.5 MG
     Route: 048
  2. RISPERIDONE [Suspect]
     Indication: CONDUCT DISORDER

REACTIONS (2)
  - GAIT DISTURBANCE [None]
  - OEDEMA PERIPHERAL [None]
